FAERS Safety Report 16525337 (Version 3)
Quarter: 2019Q3

REPORT INFORMATION
  Report Type: Spontaneous
  Country: JP (occurrence: JP)
  Receive Date: 20190702
  Receipt Date: 20190718
  Transmission Date: 20191004
  Serious: Yes (Disabling, Other)
  Sender: FDA-Public Use
  Company Number: JP-TAKEDA-2019TJP015188

PATIENT
  Age: 48 Year
  Sex: Female

DRUGS (4)
  1. ACETAMINOPHEN. [Concomitant]
     Active Substance: ACETAMINOPHEN
     Dosage: 300 MILLIGRAM, RECEIVED ON AS NEEDED BASIS ONCE A DAY
     Route: 048
     Dates: start: 20180208
  2. TAKEPRON OD TABLETS 15 [Suspect]
     Active Substance: LANSOPRAZOLE
     Indication: GASTRIC ULCER
     Dosage: 15 MILLIGRAM, QD
     Route: 048
     Dates: start: 20190419, end: 20190422
  3. AUGMENTIN [Suspect]
     Active Substance: AMOXICILLIN\CLAVULANATE POTASSIUM
     Indication: PHARYNGITIS
     Dosage: 250 MILLIGRAM, TID
     Route: 048
     Dates: start: 20190419, end: 20190422
  4. ALVESCO [Concomitant]
     Active Substance: CICLESONIDE
     Indication: ASTHMA
     Dosage: 50 MICROGRAM, BID
     Route: 055
     Dates: start: 20180406

REACTIONS (1)
  - Rhabdomyolysis [Recovered/Resolved with Sequelae]

NARRATIVE: CASE EVENT DATE: 20190420
